FAERS Safety Report 18824040 (Version 4)
Quarter: 2021Q2

REPORT INFORMATION
  Report Type: Spontaneous
  Country: US (occurrence: US)
  Receive Date: 20210202
  Receipt Date: 20210519
  Transmission Date: 20210717
  Serious: Yes (Hospitalization, Other)
  Sender: FDA-Public Use
  Company Number: US-MALLINCKRODT-T202004025

PATIENT
  Sex: Male

DRUGS (3)
  1. H.P. ACTHAR [Suspect]
     Active Substance: CORTICOTROPIN
     Dosage: 1 MILLILITER (80 UNITS), BIW
     Route: 058
     Dates: start: 202007, end: 20210211
  2. H.P. ACTHAR [Suspect]
     Active Substance: CORTICOTROPIN
     Indication: UVEITIS
     Dosage: UNK, TWICE WEEKLY
     Route: 065
     Dates: start: 202007, end: 202007
  3. H.P. ACTHAR [Suspect]
     Active Substance: CORTICOTROPIN
     Indication: IRIDOCYCLITIS
     Dosage: 1 MILLILITER, QW (80 UNITS)
     Route: 058
     Dates: start: 202007, end: 202007

REACTIONS (14)
  - Pneumonia [Unknown]
  - Vomiting [Not Recovered/Not Resolved]
  - Suspected COVID-19 [Unknown]
  - Gallbladder disorder [Not Recovered/Not Resolved]
  - Gallbladder operation [Unknown]
  - Iridocyclitis [Not Recovered/Not Resolved]
  - Uveitis [Not Recovered/Not Resolved]
  - Illness [Unknown]
  - Feeding disorder [Not Recovered/Not Resolved]
  - Drug ineffective [Not Recovered/Not Resolved]
  - Condition aggravated [Not Recovered/Not Resolved]
  - Vision blurred [Recovering/Resolving]
  - Weight decreased [Unknown]
  - Blood pressure increased [Recovered/Resolved]

NARRATIVE: CASE EVENT DATE: 2020
